FAERS Safety Report 20568925 (Version 1)
Quarter: 2022Q1

REPORT INFORMATION
  Report Type: Spontaneous
  Country: US (occurrence: None)
  Receive Date: 20220308
  Receipt Date: 20220308
  Transmission Date: 20220423
  Serious: No
  Sender: FDA-Public Use
  Company Number: US-ROCHE-3010235

PATIENT
  Sex: Female

DRUGS (1)
  1. EVRYSDI [Suspect]
     Active Substance: RISDIPLAM
     Indication: Muscle atrophy
     Dosage: EVRYSDI POWDER FOR ORAL SOLUTION 0.75MG/1 ML
     Route: 048

REACTIONS (3)
  - Product availability issue [Unknown]
  - Product dose omission issue [Unknown]
  - No adverse event [Unknown]
